FAERS Safety Report 5488912-1 (Version None)
Quarter: 2007Q4

REPORT INFORMATION
  Report Type: 
  Country: None (occurrence: None)
  Receive Date: 20071017
  Receipt Date: 20071008
  Transmission Date: 20080405
  Serious: Yes (Other)
  Sender: FDA-Public Use
  Company Number: US-PFIZER INC-2007085583

PATIENT
  Sex: Female
  Weight: 57.727 kg

DRUGS (4)
  1. LIPITOR [Suspect]
     Indication: BLOOD CHOLESTEROL
  2. CARDIZEM [Concomitant]
  3. FOSAMAX PLUS D [Concomitant]
  4. CALCIUM [Concomitant]

REACTIONS (4)
  - GAIT DISTURBANCE [None]
  - JOINT LOCK [None]
  - NEUROPATHY PERIPHERAL [None]
  - SENSATION OF HEAVINESS [None]
